FAERS Safety Report 6150145-3 (Version None)
Quarter: 2009Q2

REPORT INFORMATION
  Report Type: 
  Country: None (occurrence: None)
  Receive Date: 20090408
  Receipt Date: 20090408
  Transmission Date: 20091009
  Serious: Yes (Hospitalization)
  Sender: FDA-Public Use
  Company Number: None

PATIENT
  Age: 13 Year
  Sex: Male

DRUGS (1)
  1. COMPAZINE [Suspect]
     Dosage: 10 MG QID ORAL (PO)
     Route: 048
     Dates: start: 20090401, end: 20090401

REACTIONS (4)
  - INCORRECT DOSE ADMINISTERED [None]
  - MOVEMENT DISORDER [None]
  - MUSCLE SPASMS [None]
  - URTICARIA [None]
